FAERS Safety Report 21989994 (Version 5)
Quarter: 2023Q2

REPORT INFORMATION
  Report Type: Spontaneous
  Country: US (occurrence: US)
  Receive Date: 20230214
  Receipt Date: 20230629
  Transmission Date: 20230721
  Serious: No
  Sender: FDA-Public Use
  Company Number: US-PFIZER INC-PV202300026767

PATIENT
  Age: 61 Year
  Sex: Male

DRUGS (3)
  1. INLYTA [Suspect]
     Active Substance: AXITINIB
     Indication: Renal cancer
     Dosage: UNK, 2X/DAY, (2 TABLETS EVERY MORNING AND 1 TABLET EVERY AFTERNOON)
  2. INLYTA [Suspect]
     Active Substance: AXITINIB
     Dosage: 5 MG
  3. INLYTA [Suspect]
     Active Substance: AXITINIB
     Dosage: 15 MG, 3X/DAY (TID)

REACTIONS (3)
  - Neoplasm progression [Not Recovered/Not Resolved]
  - Blood urine present [Unknown]
  - Off label use [Unknown]
